FAERS Safety Report 9059709 (Version 1)
Quarter: 2013Q1

REPORT INFORMATION
  Report Type: Spontaneous
  Country: US (occurrence: None)
  Receive Date: 20130206
  Receipt Date: 20130206
  Transmission Date: 20140127
  Serious: Yes (Hospitalization)
  Sender: FDA-Public Use
  Company Number: None

PATIENT
  Age: 60 Year
  Sex: Male
  Weight: 128.2 kg

DRUGS (1)
  1. MORPHINE [Suspect]
     Dosage: 15 MG  BID  PO
     Route: 048
     Dates: start: 20121011, end: 20121107

REACTIONS (7)
  - Delirium [None]
  - Hyperglycaemia [None]
  - Myoclonus [None]
  - Dehydration [None]
  - Confusional state [None]
  - Nausea [None]
  - Drug tolerance decreased [None]
